FAERS Safety Report 7775807-3 (Version None)
Quarter: 2011Q3

REPORT INFORMATION
  Report Type: 
  Country: None (occurrence: None)
  Receive Date: 20110923
  Receipt Date: 20110922
  Transmission Date: 20111222
  Serious: Yes (Hospitalization)
  Sender: FDA-Public Use
  Company Number: BE-ABBOTT-11P-013-0856779-00

PATIENT
  Sex: Male

DRUGS (4)
  1. CELEBREX [Concomitant]
     Indication: PRODUCT USED FOR UNKNOWN INDICATION
     Dosage: 2 X 2 PER DAY
  2. HUMIRA [Suspect]
  3. ACETAMINOPHEN [Concomitant]
     Indication: ARTHRITIS
  4. HUMIRA [Suspect]
     Indication: ANKYLOSING SPONDYLITIS
     Dates: start: 20080601

REACTIONS (3)
  - CERVICAL ROOT PAIN [None]
  - CERVICAL SPINAL STENOSIS [None]
  - INTERVERTEBRAL DISC DISORDER [None]
